FAERS Safety Report 18780178 (Version 1)
Quarter: 2021Q1

REPORT INFORMATION
  Report Type: Spontaneous
  Country: US (occurrence: US)
  Receive Date: 20210122
  Receipt Date: 20210122
  Transmission Date: 20210419
  Serious: Yes (Life-Threatening, Hospitalization, Other)
  Sender: FDA-Public Use
  Company Number: None

PATIENT
  Age: 34 Year
  Sex: Female
  Weight: 48.5 kg

DRUGS (12)
  1. DARBEPOETIN ALFA [Concomitant]
     Active Substance: DARBEPOETIN ALFA
  2. HYDROMORPHONE [Concomitant]
     Active Substance: HYDROMORPHONE
  3. TACORLIMUS ORAL CAPSULE [Concomitant]
  4. BAMLANIVIMAB. [Suspect]
     Active Substance: BAMLANIVIMAB
     Indication: SUSPECTED COVID-19
     Dosage: ?          OTHER FREQUENCY:ONE TIME;?
     Route: 042
  5. FUROSEMIDE. [Concomitant]
     Active Substance: FUROSEMIDE
  6. PANTOPRAZOLE ORAL TABLET [Concomitant]
  7. WARFARIN 10MG DAILY [Concomitant]
  8. VITAMIN B12 [Concomitant]
     Active Substance: CYANOCOBALAMIN
  9. RENA?VITE ORAL TABLET [Concomitant]
  10. NORVASC ORAL TABLET [Concomitant]
  11. PREDNISONE ORAL TABLET [Concomitant]
  12. VITAMIN B3 [Concomitant]
     Active Substance: NIACIN

REACTIONS (5)
  - Product dose omission issue [None]
  - Extra dose administered [None]
  - Brain oedema [None]
  - Rectal haemorrhage [None]
  - Treatment noncompliance [None]

NARRATIVE: CASE EVENT DATE: 20210112
